FAERS Safety Report 17673426 (Version 1)
Quarter: 2020Q2

REPORT INFORMATION
  Report Type: Spontaneous
  Country: DE (occurrence: DE)
  Receive Date: 20200416
  Receipt Date: 20200416
  Transmission Date: 20200713
  Serious: Yes (Other)
  Sender: FDA-Public Use
  Company Number: DE-ACCORD-178610

PATIENT
  Age: 26 Year
  Sex: Male
  Weight: 96 kg

DRUGS (4)
  1. FOLINIC ACID AMNEAL [Concomitant]
     Dosage: 190MG,1G / 100 ML
  2. FLUOROURACIL ACCORD [Suspect]
     Active Substance: FLUOROURACIL
     Indication: PRODUCT USED FOR UNKNOWN INDICATION
     Dosage: 5G,430MG,PUMP 46H,2550MG
     Route: 042
  3. AVASTIN [Concomitant]
     Active Substance: BEVACIZUMAB
     Dosage: 480MG,400 MG
  4. IRINOTECAN [Concomitant]
     Active Substance: IRINOTECAN
     Dosage: 190MG, 300MG/15ML

REACTIONS (6)
  - Muscle spasticity [Unknown]
  - Angina pectoris [Unknown]
  - Cough [Unknown]
  - Disturbance in attention [Unknown]
  - Speech disorder [Unknown]
  - Asthenia [Unknown]

NARRATIVE: CASE EVENT DATE: 20200210
